FAERS Safety Report 16849190 (Version 1)
Quarter: 2019Q4

REPORT INFORMATION
  Report Type: Spontaneous
  Country: US (occurrence: US)
  Receive Date: 20190924
  Receipt Date: 20190924
  Transmission Date: 20200122
  Serious: No
  Sender: FDA-Public Use
  Company Number: None

PATIENT
  Age: 36 Year
  Sex: Female
  Weight: 67.5 kg

DRUGS (7)
  1. NP THYROID [Suspect]
     Active Substance: LEVOTHYROXINE\LIOTHYRONINE
     Indication: HYPOTHYROIDISM
  2. COMPOUNDED T3 [Concomitant]
     Active Substance: LIOTHYRONINE SODIUM
  3. DIM [Concomitant]
  4. THYROID SUPPLEMENT [Concomitant]
  5. VITAMIN B12 [Concomitant]
     Active Substance: CYANOCOBALAMIN
  6. FISH OIL [Concomitant]
     Active Substance: FISH OIL
  7. VITAMIN D [Concomitant]
     Active Substance: VITAMIN D NOS

REACTIONS (8)
  - Product taste abnormal [None]
  - Weight increased [None]
  - Drug ineffective [None]
  - Bedridden [None]
  - Hypothyroidism [None]
  - Symptom recurrence [None]
  - Product odour abnormal [None]
  - Product complaint [None]

NARRATIVE: CASE EVENT DATE: 20190823
